FAERS Safety Report 6245541-X (Version None)
Quarter: 2009Q2

REPORT INFORMATION
  Report Type: 
  Country: None (occurrence: None)
  Receive Date: 20090625
  Receipt Date: 20090622
  Transmission Date: 20091009
  Serious: Yes (Hospitalization, Other)
  Sender: FDA-Public Use
  Company Number: MY-RB-017187-09

PATIENT
  Age: 25 Year
  Sex: Male

DRUGS (1)
  1. SUBUTEX [Suspect]
     Indication: DRUG USE FOR UNKNOWN INDICATION
     Dosage: DOSING INFORMATION UNKNOWN
     Route: 042

REACTIONS (30)
  - ASCITES [None]
  - CARDIAC FAILURE CONGESTIVE [None]
  - CARDIAC MURMUR [None]
  - CARDIAC VALVE VEGETATION [None]
  - CENTRAL NERVOUS SYSTEM LESION [None]
  - CONGESTIVE CARDIOMYOPATHY [None]
  - CONVULSION [None]
  - DYSARTHRIA [None]
  - EMBOLISM [None]
  - ENDOCARDITIS [None]
  - HAEMOLYTIC ANAEMIA [None]
  - HEART VALVE INCOMPETENCE [None]
  - HEMIPARESIS [None]
  - HEPATOMEGALY [None]
  - HYPOALBUMINAEMIA [None]
  - IMMUNOGLOBULINS DECREASED [None]
  - INFARCTION [None]
  - INTENTIONAL DRUG MISUSE [None]
  - LYMPHANGIECTASIA INTESTINAL [None]
  - LYMPHATIC DISORDER [None]
  - LYMPHOCYTE COUNT DECREASED [None]
  - MYCOTIC ANEURYSM [None]
  - OEDEMA PERIPHERAL [None]
  - PROTEIN-LOSING GASTROENTEROPATHY [None]
  - PSEUDOMEMBRANOUS COLITIS [None]
  - PYREXIA [None]
  - RIGHT VENTRICULAR FAILURE [None]
  - STAPHYLOCOCCAL SEPSIS [None]
  - TRICUSPID VALVE INCOMPETENCE [None]
  - WOUND DEHISCENCE [None]
